FAERS Safety Report 8346693-8 (Version None)
Quarter: 2012Q2

REPORT INFORMATION
  Report Type: 
  Country: None (occurrence: None)
  Receive Date: 20120509
  Receipt Date: 20120508
  Transmission Date: 20120825
  Serious: Yes (Hospitalization, Other)
  Sender: FDA-Public Use
  Company Number: PHHY2012NL034137

PATIENT
  Sex: Male
  Weight: 95 kg

DRUGS (5)
  1. ZOMETA [Suspect]
     Dosage: 4 MG/100ML ONCE PER 28 DAYS
     Dates: start: 20120419
  2. ZOMETA [Suspect]
     Dosage: 4 MG/100ML ONCE PER 28 DAYS
     Dates: start: 20120322
  3. CALCIUM CARBONATE [Concomitant]
  4. ZOMETA [Suspect]
     Indication: METASTASES TO BONE
     Dosage: 4 MG/100ML ONCE PER 28 DAYS
     Dates: start: 20110101
  5. ZOMETA [Suspect]
     Dosage: 4 MG/100ML ONCE PER 28 DAYS
     Dates: start: 20111108

REACTIONS (3)
  - SINUS POLYP [None]
  - EPISTAXIS [None]
  - METASTASIS [None]
